FAERS Safety Report 10335513 (Version 1)
Quarter: 2014Q3

REPORT INFORMATION
  Report Type: Spontaneous
  Country: US (occurrence: None)
  Receive Date: 20140722
  Receipt Date: 20140722
  Transmission Date: 20150326
  Serious: No
  Sender: FDA-Public Use
  Company Number: None

PATIENT
  Age: 54 Year
  Sex: Female
  Weight: 68.04 kg

DRUGS (1)
  1. GLYCOLAX [Suspect]
     Active Substance: POLYETHYLENE GLYCOL 3350
     Indication: COLONOSCOPY
     Dosage: 1/16  BOTTLE  ONCE DAILY  TAKEN BY MOUTH
     Route: 048
     Dates: start: 20140720, end: 20140720

REACTIONS (4)
  - Dysphagia [None]
  - Rash [None]
  - Pharyngeal oedema [None]
  - Anaphylactic reaction [None]

NARRATIVE: CASE EVENT DATE: 20140720
